FAERS Safety Report 21653629 (Version 1)
Quarter: 2022Q4

REPORT INFORMATION
  Report Type: Other
  Country: CA (occurrence: None)
  Receive Date: 20221129
  Receipt Date: 20221129
  Transmission Date: 20230113
  Serious: Yes (Other)
  Sender: FDA-Public Use
  Company Number: CA-ROCHE-2650816

PATIENT
  Age: 21 Year
  Sex: Female

DRUGS (10)
  1. OCREVUS [Suspect]
     Active Substance: OCRELIZUMAB
     Indication: Relapsing-remitting multiple sclerosis
     Dosage: 300 MG AT DAY 0 AND 14, THEN 600 MG EVERY 6 MONTH, STRENGTH: 300MG/250ML
     Route: 042
     Dates: start: 20200129
  2. DEPO-PROVERA [Concomitant]
     Active Substance: MEDROXYPROGESTERONE ACETATE
  3. PROZAC [Concomitant]
     Active Substance: FLUOXETINE HYDROCHLORIDE
  4. CONCERTA [Concomitant]
     Active Substance: METHYLPHENIDATE HYDROCHLORIDE
  5. METFORMIN [Concomitant]
     Active Substance: METFORMIN HYDROCHLORIDE
  6. TYLENOL [Concomitant]
     Active Substance: ACETAMINOPHEN
     Indication: Headache
  7. BIOTIN [Concomitant]
     Active Substance: BIOTIN
  8. FISH OIL [Concomitant]
     Active Substance: FISH OIL
  9. MAGNESIUM [Concomitant]
     Active Substance: MAGNESIUM
  10. CALCIUM [Concomitant]
     Active Substance: CALCIUM

REACTIONS (21)
  - Eye disorder [Not Recovered/Not Resolved]
  - Tooth disorder [Recovering/Resolving]
  - Headache [Unknown]
  - Fatigue [Not Recovered/Not Resolved]
  - Musculoskeletal disorder [Not Recovered/Not Resolved]
  - Asthenia [Not Recovered/Not Resolved]
  - Feeling abnormal [Not Recovered/Not Resolved]
  - Infusion related reaction [Unknown]
  - Abdominal pain upper [Not Recovered/Not Resolved]
  - Diabetes mellitus inadequate control [Not Recovered/Not Resolved]
  - Eye pain [Not Recovered/Not Resolved]
  - Joint dislocation [Unknown]
  - Dizziness [Unknown]
  - Chest discomfort [Not Recovered/Not Resolved]
  - Memory impairment [Recovering/Resolving]
  - Chest pain [Unknown]
  - Dyspnoea [Unknown]
  - Abdominal pain upper [Unknown]
  - Myalgia [Unknown]
  - Pain [Unknown]
  - COVID-19 [Recovered/Resolved with Sequelae]

NARRATIVE: CASE EVENT DATE: 20200129
